FAERS Safety Report 4970587-9 (Version None)
Quarter: 2006Q2

REPORT INFORMATION
  Report Type: 
  Country: None (occurrence: None)
  Receive Date: 20060412
  Receipt Date: 20051114
  Transmission Date: 20061013
  Serious: Yes (Hospitalization)
  Sender: FDA-Public Use
  Company Number: US-MERCK-0511USA02458

PATIENT
  Age: 24 Year
  Sex: Female
  Weight: 52 kg

DRUGS (1)
  1. VIOXX [Suspect]
     Indication: BACK DISORDER
     Route: 048

REACTIONS (8)
  - ABORTION SPONTANEOUS [None]
  - BLOOD DISORDER [None]
  - OVARIAN ENLARGEMENT [None]
  - PELVIC INFECTION [None]
  - PNEUMONIA [None]
  - THROMBOSIS [None]
  - URINARY TRACT INFECTION [None]
  - VAGINAL HAEMORRHAGE [None]
